FAERS Safety Report 6286571-1 (Version None)
Quarter: 2009Q3

REPORT INFORMATION
  Report Type: 
  Country: None (occurrence: None)
  Receive Date: 20090728
  Receipt Date: 20090720
  Transmission Date: 20100115
  Serious: Yes (Other)
  Sender: FDA-Public Use
  Company Number: US-BRISTOL-MYERS SQUIBB COMPANY-14708382

PATIENT
  Age: 82 Year
  Sex: Male

DRUGS (3)
  1. CISPLATIN [Suspect]
     Indication: LARYNGEAL CANCER
     Dates: end: 20010501
  2. FLUOROURACIL [Suspect]
     Indication: LARYNGEAL CANCER
     Dates: end: 20010501
  3. RADIOTHERAPY [Suspect]
     Indication: LARYNGEAL CANCER
     Dosage: 2 GRAY (GY) FRACTIONS 66 DOSAGEFORM = 66GY
     Dates: end: 20010701

REACTIONS (1)
  - ANGIOSARCOMA [None]
